FAERS Safety Report 16340082 (Version 1)
Quarter: 2019Q2

REPORT INFORMATION
  Report Type: Spontaneous
  Country: FR (occurrence: FR)
  Receive Date: 20190521
  Receipt Date: 20190521
  Transmission Date: 20190711
  Serious: Yes (Other)
  Sender: FDA-Public Use
  Company Number: FR-BIOGEN-2019BI00738958

PATIENT
  Age: 53 Year
  Sex: Female

DRUGS (2)
  1. BIPROFENID LP [Suspect]
     Active Substance: KETOPROFEN
     Indication: SCIATICA
     Route: 048
     Dates: start: 20190228, end: 20190305
  2. AVONEX [Suspect]
     Active Substance: INTERFERON BETA-1A
     Indication: MULTIPLE SCLEROSIS
     Route: 042
     Dates: start: 20190213, end: 20190227

REACTIONS (1)
  - Hepatitis cholestatic [Recovered/Resolved]

NARRATIVE: CASE EVENT DATE: 20190305
